FAERS Safety Report 9904443 (Version 1)
Quarter: 2014Q1

REPORT INFORMATION
  Report Type: Spontaneous
  Country: US (occurrence: US)
  Receive Date: 20140218
  Receipt Date: 20140218
  Transmission Date: 20141002
  Serious: No
  Sender: FDA-Public Use
  Company Number: US-HORIZON-DUE-0056-2013

PATIENT
  Sex: Male

DRUGS (1)
  1. DUEXIS [Suspect]
     Indication: HEADACHE
     Dosage: 1 TABLET TID
     Dates: start: 201306

REACTIONS (1)
  - Drug ineffective [Unknown]
